FAERS Safety Report 7309044-3 (Version None)
Quarter: 2011Q1

REPORT INFORMATION
  Report Type: 
  Country: None (occurrence: None)
  Receive Date: 20110223
  Receipt Date: 20110217
  Transmission Date: 20110831
  Serious: Yes (Death)
  Sender: FDA-Public Use
  Company Number: US-GENZYME-CLOF-1001440

PATIENT
  Age: 18 Year
  Sex: Female

DRUGS (5)
  1. TACROLIMUS [Concomitant]
     Indication: IMMUNOSUPPRESSION
     Dosage: UNK, DAY -2 TO DAY +180
     Route: 065
  2. FLUDARA [Suspect]
     Indication: BONE MARROW CONDITIONING REGIMEN
     Dosage: 30 MG/M2, QDX5 (DAYS -7, -6, -3, -4, -3)
     Route: 042
  3. MELPHALAN [Suspect]
     Indication: BONE MARROW CONDITIONING REGIMEN
     Dosage: 140 MG/M2, ONCE ON STUDY DAY -2
     Route: 042
  4. CLOLAR [Suspect]
     Indication: ACUTE MYELOID LEUKAEMIA
     Dosage: 40 MG/M2, QDX4
     Route: 042
  5. CAMPATH [Suspect]
     Indication: BONE MARROW CONDITIONING REGIMEN
     Dosage: 20 MG, QDX5 (DAYS -7, -6, -3, -4, -3)
     Route: 042

REACTIONS (1)
  - PNEUMONIA CYTOMEGALOVIRAL [None]
